FAERS Safety Report 17623276 (Version 2)
Quarter: 2022Q1

REPORT INFORMATION
  Report Type: Spontaneous
  Country: PT (occurrence: PT)
  Receive Date: 20200403
  Receipt Date: 20220331
  Transmission Date: 20220423
  Serious: Yes (Death, Other)
  Sender: FDA-Public Use
  Company Number: PT-009507513-2003PRT007149

PATIENT
  Age: 33 Year
  Sex: Female

DRUGS (1)
  1. ZERBAXA [Suspect]
     Active Substance: CEFTOLOZANE SULFATE\TAZOBACTAM SODIUM
     Indication: Empyema
     Dosage: 3 GRAM, Q8H, DURING 14 DAYS

REACTIONS (2)
  - Death [Fatal]
  - Product use in unapproved indication [Unknown]
